FAERS Safety Report 17183709 (Version 2)
Quarter: 2020Q1

REPORT INFORMATION
  Report Type: Spontaneous
  Country: DE (occurrence: DE)
  Receive Date: 20191220
  Receipt Date: 20200123
  Transmission Date: 20200409
  Serious: Yes (Life-Threatening, Other)
  Sender: FDA-Public Use
  Company Number: DE-BAYER-2019-231628

PATIENT
  Age: 52 Year
  Sex: Female
  Weight: 60 kg

DRUGS (1)
  1. MIRENA [Suspect]
     Active Substance: LEVONORGESTREL
     Indication: CONTRACEPTION
     Dosage: 20 MCG/24HR, CONT
     Route: 015
     Dates: start: 20191018, end: 20191212

REACTIONS (11)
  - Middle insomnia [Not Recovered/Not Resolved]
  - Adverse event [Not Recovered/Not Resolved]
  - Palpitations [Recovering/Resolving]
  - Nausea [Not Recovered/Not Resolved]
  - Initial insomnia [Not Recovered/Not Resolved]
  - Cystitis [Recovered/Resolved]
  - Heart rate increased [Recovering/Resolving]
  - Muscle spasms [Unknown]
  - Sleep disorder [Recovered/Resolved]
  - Tremor [Not Recovered/Not Resolved]
  - Restlessness [Not Recovered/Not Resolved]

NARRATIVE: CASE EVENT DATE: 201911
